FAERS Safety Report 5211744-6 (Version None)
Quarter: 2007Q1

REPORT INFORMATION
  Report Type: 
  Country: None (occurrence: None)
  Receive Date: 20070118
  Receipt Date: 20070112
  Transmission Date: 20070707
  Serious: Yes (Hospitalization)
  Sender: FDA-Public Use
  Company Number: JASIN2462

PATIENT
  Age: 5 Week
  Sex: Male
  Weight: 4.7 kg

DRUGS (1)
  1. LOPERAMIDE HCL [Suspect]
     Indication: DIARRHOEA
     Route: 048

REACTIONS (11)
  - APNOEA [None]
  - BRADYCARDIA [None]
  - CYANOSIS [None]
  - DYSTONIA [None]
  - ENCEPHALOPATHY [None]
  - EXTRASYSTOLES [None]
  - HYPERREFLEXIA [None]
  - HYPERTONIA [None]
  - MIOSIS [None]
  - OPISTHOTONUS [None]
  - SOMNOLENCE [None]
